FAERS Safety Report 8234223-0 (Version None)
Quarter: 2012Q1

REPORT INFORMATION
  Report Type: 
  Country: None (occurrence: None)
  Receive Date: 20120326
  Receipt Date: 20120315
  Transmission Date: 20120608
  Serious: Yes (Other)
  Sender: FDA-Public Use
  Company Number: GB-SANOFI-AVENTIS-2012SA018312

PATIENT
  Age: 68 Year
  Sex: Male

DRUGS (8)
  1. CETUXIMAB [Suspect]
     Dosage: FORM: INFUSION
     Route: 065
     Dates: start: 20100604
  2. OXALIPLATIN [Suspect]
     Dosage: FORM: INFUSION
     Route: 065
     Dates: start: 20100604
  3. CAPECITABINE [Suspect]
     Dosage: FORM: INFUSION
     Route: 065
  4. FLUOROURACIL [Suspect]
     Route: 065
     Dates: start: 20111229
  5. FLUOROURACIL [Suspect]
     Route: 042
     Dates: start: 20100604
  6. FLUOROURACIL [Suspect]
     Route: 040
     Dates: start: 20100604
  7. OXALIPLATIN [Suspect]
     Dosage: FORM: INFUSION
     Route: 065
     Dates: start: 20111229
  8. CETUXIMAB [Suspect]
     Dosage: FORM: INFUSION
     Route: 065
     Dates: start: 20120105

REACTIONS (1)
  - BLOOD MAGNESIUM DECREASED [None]
